FAERS Safety Report 6688332-8 (Version None)
Quarter: 2010Q2

REPORT INFORMATION
  Report Type: 
  Country: None (occurrence: None)
  Receive Date: 20100420
  Receipt Date: 20100408
  Transmission Date: 20101027
  Serious: Yes (Hospitalization, Other)
  Sender: FDA-Public Use
  Company Number: PHHY2010GB08837

PATIENT
  Sex: Male
  Weight: 204 kg

DRUGS (2)
  1. CLOZARIL [Suspect]
     Indication: SCHIZOPHRENIA
     Dosage: 300 MG, UNK
     Route: 048
     Dates: start: 20040322
  2. CLOZARIL [Suspect]
     Dosage: 400 MG, UNK
     Route: 048

REACTIONS (3)
  - GASTRIC BYPASS [None]
  - OBESITY [None]
  - SCHIZOPHRENIA [None]
